FAERS Safety Report 13327115 (Version 2)
Quarter: 2017Q2

REPORT INFORMATION
  Report Type: Spontaneous
  Country: US (occurrence: US)
  Receive Date: 20170313
  Receipt Date: 20170609
  Transmission Date: 20170830
  Serious: Yes (Disabling)
  Sender: FDA-Public Use
  Company Number: US-ROCHE-1899596

PATIENT
  Age: 72 Year
  Sex: Female
  Weight: 79.9 kg

DRUGS (3)
  1. ACTEMRA [Suspect]
     Active Substance: TOCILIZUMAB
     Indication: RHEUMATOID ARTHRITIS
     Dosage: NO
     Route: 058
     Dates: start: 201612, end: 201612
  2. ORENCIA [Concomitant]
     Active Substance: ABATACEPT
     Indication: RHEUMATOID ARTHRITIS
     Route: 065
     Dates: start: 2017
  3. ACTEMRA [Suspect]
     Active Substance: TOCILIZUMAB
     Dosage: UNKNOWN
     Route: 058
     Dates: start: 201702

REACTIONS (10)
  - Rash [Recovered/Resolved with Sequelae]
  - Fear [Unknown]
  - Herpes zoster [Recovering/Resolving]
  - Diarrhoea [Recovered/Resolved with Sequelae]
  - Drug hypersensitivity [Unknown]
  - Swelling [Recovering/Resolving]
  - Chest pain [Recovered/Resolved]
  - Treatment noncompliance [Unknown]
  - Vomiting [Recovered/Resolved with Sequelae]
  - Adverse drug reaction [Not Recovered/Not Resolved]

NARRATIVE: CASE EVENT DATE: 201612
